FAERS Safety Report 5668057-8 (Version None)
Quarter: 2008Q1

REPORT INFORMATION
  Report Type: 
  Country: None (occurrence: None)
  Receive Date: 20080315
  Receipt Date: 20080206
  Transmission Date: 20080703
  Serious: No
  Sender: FDA-Public Use
  Company Number: US-ABBOTT-08P-163-0437717-00

PATIENT
  Sex: Female
  Weight: 47.67 kg

DRUGS (7)
  1. HUMIRA [Suspect]
     Indication: CROHN'S DISEASE
     Route: 058
     Dates: end: 20070101
  2. HUMIRA [Suspect]
     Route: 058
     Dates: start: 20070101, end: 20080201
  3. ZEGERID [Concomitant]
     Indication: DRUG USE FOR UNKNOWN INDICATION
     Route: 048
  4. AMITIZA [Concomitant]
     Indication: DRUG USE FOR UNKNOWN INDICATION
     Route: 048
  5. PHENERGAN HCL [Concomitant]
     Indication: NAUSEA
     Route: 048
  6. PROPACET 100 [Concomitant]
     Indication: PAIN
     Route: 048
     Dates: start: 20080101
  7. LIDOCAIDE PATCH [Concomitant]
     Indication: PAIN
     Route: 061

REACTIONS (1)
  - CROHN'S DISEASE [None]
